FAERS Safety Report 24842231 (Version 2)
Quarter: 2025Q1

REPORT INFORMATION
  Report Type: Report from Study
  Country: US (occurrence: US)
  Receive Date: 20250115
  Receipt Date: 20250227
  Transmission Date: 20250409
  Serious: Yes (Hospitalization, Other)
  Sender: ABBVIE
  Company Number: US-ABBVIE-6078423

PATIENT
  Age: 40 Year
  Sex: Male

DRUGS (1)
  1. SKYRIZI [Suspect]
     Active Substance: RISANKIZUMAB-RZAA
     Indication: Psoriasis
     Route: 058
     Dates: start: 20220208, end: 20240730

REACTIONS (10)
  - Cardiac valve rupture [Recovered/Resolved]
  - Fatigue [Not Recovered/Not Resolved]
  - Cardiac valve rupture [Unknown]
  - Back pain [Recovered/Resolved]
  - Wound infection staphylococcal [Recovered/Resolved]
  - Blood urine present [Recovered/Resolved]
  - Cardiac aneurysm [Recovered/Resolved]
  - Wound dehiscence [Unknown]
  - Intra-abdominal haemorrhage [Recovered/Resolved]
  - Cardiac procedure complication [Unknown]

NARRATIVE: CASE EVENT DATE: 20230101
